FAERS Safety Report 8282994-X (Version None)
Quarter: 2012Q1

REPORT INFORMATION
  Report Type: 
  Country: None (occurrence: None)
  Receive Date: 20120328
  Receipt Date: 20120313
  Transmission Date: 20120608
  Serious: Yes (Other)
  Sender: FDA-Public Use
  Company Number: 2012031024

PATIENT
  Sex: Male

DRUGS (2)
  1. SULFAMETHOXAZOLE AND TRIMETHOPRIM [Suspect]
  2. PRIVIGEN [Suspect]

REACTIONS (3)
  - ADVERSE EVENT [None]
  - TONGUE CANCER RECURRENT [None]
  - GRANULOMA SKIN [None]
